FAERS Safety Report 14066954 (Version 1)
Quarter: 2017Q4

REPORT INFORMATION
  Report Type: Spontaneous
  Country: US (occurrence: US)
  Receive Date: 20171009
  Receipt Date: 20171009
  Transmission Date: 20180321
  Serious: Yes (Other)
  Sender: FDA-Public Use
  Company Number: US-NAPPMUNDI-USA-2017-0141054

PATIENT
  Sex: Male

DRUGS (2)
  1. HEROIN [Suspect]
     Active Substance: DIAMORPHINE
     Indication: SUBSTANCE USE DISORDER
     Dosage: UNK
     Route: 065
  2. OXYCONTIN [Suspect]
     Active Substance: OXYCODONE HYDROCHLORIDE
     Indication: DRUG USE DISORDER
     Dosage: UNK
     Route: 048

REACTIONS (8)
  - Substance dependence [Recovered/Resolved]
  - Road traffic accident [Unknown]
  - Substance abuse [Recovered/Resolved]
  - Emotional distress [Unknown]
  - Malaise [Unknown]
  - Weight decreased [Unknown]
  - Euphoric mood [Unknown]
  - General physical health deterioration [Unknown]
